FAERS Safety Report 7916465-4 (Version None)
Quarter: 2011Q4

REPORT INFORMATION
  Report Type: 
  Country: None (occurrence: None)
  Receive Date: 20111114
  Receipt Date: 20111031
  Transmission Date: 20120403
  Serious: Yes (Other)
  Sender: FDA-Public Use
  Company Number: 1100943

PATIENT
  Age: 39 Year
  Sex: Male

DRUGS (2)
  1. DOCETAXEL [Suspect]
     Indication: LEIOMYOSARCOMA METASTATIC
  2. GEMCITABINE HYDROCHLORIDE [Concomitant]

REACTIONS (4)
  - FEBRILE NEUTROPENIA [None]
  - RASH PRURITIC [None]
  - ECTHYMA [None]
  - DIARRHOEA [None]
